FAERS Safety Report 4957824-1 (Version None)
Quarter: 2006Q1

REPORT INFORMATION
  Report Type: 
  Country: None (occurrence: None)
  Receive Date: 20060324
  Receipt Date: 20060313
  Transmission Date: 20060701
  Serious: Yes (Hospitalization)
  Sender: FDA-Public Use
  Company Number: 2006035602

PATIENT
  Age: 63 Year
  Sex: Male

DRUGS (3)
  1. DOXAZOSIN (DOXAZOSIN) [Suspect]
     Indication: BENIGN PROSTATIC HYPERPLASIA
     Dosage: 4 MG (4 MG, QD),  ORAL
     Route: 048
     Dates: start: 20001001
  2. BETAXOLOL [Concomitant]
  3. HYDROCHLOROTHIAZIDE [Concomitant]

REACTIONS (2)
  - CYSTITIS ESCHERICHIA [None]
  - INGUINAL HERNIA REPAIR [None]
